FAERS Safety Report 7250796-9 (Version None)
Quarter: 2011Q1

REPORT INFORMATION
  Report Type: 
  Country: None (occurrence: None)
  Receive Date: 20110128
  Receipt Date: 20110120
  Transmission Date: 20110831
  Serious: Yes (Other)
  Sender: FDA-Public Use
  Company Number: GB-BRISTOL-MYERS SQUIBB COMPANY-15503329

PATIENT

DRUGS (2)
  1. BLEOMYCIN SULFATE [Suspect]
  2. NEULASTA [Interacting]

REACTIONS (3)
  - PULMONARY TOXICITY [None]
  - DRUG INTERACTION [None]
  - PULMONARY FIBROSIS [None]
